FAERS Safety Report 14677988 (Version 2)
Quarter: 2018Q2

REPORT INFORMATION
  Report Type: Spontaneous
  Country: US (occurrence: US)
  Receive Date: 20180326
  Receipt Date: 20180615
  Transmission Date: 20180711
  Serious: Yes (Hospitalization)
  Sender: FDA-Public Use
  Company Number: US-SUN PHARMACEUTICAL INDUSTRIES LTD-2018US-167788

PATIENT
  Age: 51 Year
  Sex: Male

DRUGS (1)
  1. TEMOZOLOMIDE. [Suspect]
     Active Substance: TEMOZOLOMIDE
     Indication: GLIOBLASTOMA MULTIFORME
     Dosage: SIX CYCLES
     Route: 065

REACTIONS (5)
  - Lung infection [Unknown]
  - Blastomycosis [Unknown]
  - Histoplasmosis [Unknown]
  - Pulmonary embolism [Unknown]
  - Malignant neoplasm progression [Unknown]
